FAERS Safety Report 9727771 (Version 1)
Quarter: 2013Q4

REPORT INFORMATION
  Report Type: Spontaneous
  Country: US (occurrence: US)
  Receive Date: 20131203
  Receipt Date: 20131203
  Transmission Date: 20140711
  Serious: Yes (Other)
  Sender: FDA-Public Use
  Company Number: US-ENDO PHARMACEUTICALS INC.-AMIT20130016

PATIENT
  Age: 44 Year
  Sex: Female
  Weight: 90.8 kg

DRUGS (1)
  1. AMITRIPTYLINE [Suspect]
     Indication: DEPRESSION
     Route: 048

REACTIONS (5)
  - Suicidal ideation [Recovered/Resolved]
  - Somnolence [Not Recovered/Not Resolved]
  - Agitation [Recovered/Resolved]
  - Irritability [Recovered/Resolved]
  - Drug ineffective [Recovered/Resolved]
